FAERS Safety Report 10050621 (Version 2)
Quarter: 2014Q2

REPORT INFORMATION
  Report Type: Spontaneous
  Country: US (occurrence: US)
  Receive Date: 20140401
  Receipt Date: 20140401
  Transmission Date: 20141212
  Serious: No
  Sender: FDA-Public Use
  Company Number: US-ASTRAZENECA-2013SE51476

PATIENT
  Age: 28 Year
  Sex: Male
  Weight: 95.3 kg

DRUGS (1)
  1. NEXIUM [Suspect]
     Indication: DYSPEPSIA
     Route: 048
     Dates: start: 20130705

REACTIONS (3)
  - Dyspepsia [Unknown]
  - Drug dose omission [Unknown]
  - Intentional product misuse [Unknown]
